FAERS Safety Report 5901942-8 (Version None)
Quarter: 2008Q3

REPORT INFORMATION
  Report Type: 
  Country: None (occurrence: None)
  Receive Date: 20080929
  Receipt Date: 20080429
  Transmission Date: 20090109
  Serious: No
  Sender: FDA-Public Use
  Company Number: US-BRISTOL-MYERS SQUIBB COMPANY-14170286

PATIENT
  Age: 45 Year
  Sex: Male
  Weight: 93 kg

DRUGS (3)
  1. BUSPAR [Suspect]
     Indication: DEPRESSION
  2. CELEXA [Concomitant]
  3. TRAZODONE HCL [Concomitant]

REACTIONS (1)
  - TINNITUS [None]
